FAERS Safety Report 17659450 (Version 1)
Quarter: 2020Q2

REPORT INFORMATION
  Report Type: Spontaneous
  Country: US (occurrence: US)
  Receive Date: 20200413
  Receipt Date: 20200413
  Transmission Date: 20200713
  Serious: No
  Sender: FDA-Public Use
  Company Number: US-BION-008470

PATIENT
  Age: 63 Year
  Sex: Male

DRUGS (1)
  1. ALEVE [Suspect]
     Active Substance: NAPROXEN SODIUM
     Indication: PAIN
     Dosage: 1 CAPSULE EVERY OTHER DAY
     Route: 048

REACTIONS (4)
  - Product physical consistency issue [Unknown]
  - Incorrect product administration duration [Not Recovered/Not Resolved]
  - Poor quality product administered [Not Recovered/Not Resolved]
  - Product label issue [Unknown]
